FAERS Safety Report 16718851 (Version 4)
Quarter: 2019Q4

REPORT INFORMATION
  Report Type: Spontaneous
  Country: US (occurrence: US)
  Receive Date: 20190820
  Receipt Date: 20191219
  Transmission Date: 20200122
  Serious: No
  Sender: FDA-Public Use
  Company Number: PHEH2019US033906

PATIENT
  Age: 62 Year
  Sex: Male

DRUGS (3)
  1. LENVATINIB [Suspect]
     Active Substance: LENVATINIB
     Indication: RENAL CANCER
     Dosage: 18 MG, QD
     Route: 048
  2. AFINITOR [Suspect]
     Active Substance: EVEROLIMUS
     Indication: RENAL CANCER
     Dosage: 5 MG, QD
     Route: 048
     Dates: start: 20190906
  3. LENVATINIB [Suspect]
     Active Substance: LENVATINIB
     Dosage: 10 MG, QD
     Route: 048
     Dates: start: 20190906

REACTIONS (12)
  - Gingival bleeding [Unknown]
  - Glossitis [Unknown]
  - Blood pressure increased [Unknown]
  - Infection [Not Recovered/Not Resolved]
  - Oropharyngeal pain [Unknown]
  - Epistaxis [Recovered/Resolved]
  - Gingival blister [Recovered/Resolved]
  - Dry mouth [Unknown]
  - Oral pain [Unknown]
  - Tooth disorder [Unknown]
  - Feeding disorder [Recovered/Resolved]
  - Blister [Unknown]

NARRATIVE: CASE EVENT DATE: 20190903
